FAERS Safety Report 5635137-2 (Version None)
Quarter: 2008Q1

REPORT INFORMATION
  Report Type: 
  Country: None (occurrence: None)
  Receive Date: 20080222
  Receipt Date: 20080207
  Transmission Date: 20080703
  Serious: Yes (Other)
  Sender: FDA-Public Use
  Company Number: FR-GENENTECH-255988

PATIENT
  Age: 44 Year
  Sex: Male
  Weight: 78 kg

DRUGS (7)
  1. AVASTIN [Suspect]
     Indication: LUNG ADENOCARCINOMA
     Dosage: 15 MG/KG, Q3W
     Dates: start: 20070412
  2. AVASTIN [Suspect]
     Dosage: 10 MG/KG, Q15D
     Dates: start: 20080111
  3. AVASTIN [Suspect]
     Dosage: 15 MG/KG, UNK
     Dates: start: 20080124
  4. ERLOTINIB [Suspect]
     Indication: LUNG ADENOCARCINOMA
     Dosage: 150 MG, QD
     Dates: start: 20080111
  5. ERLOTINIB [Suspect]
     Dosage: 1 UNK, Q2D
     Dates: start: 20080128
  6. ERLOTINIB [Suspect]
     Dosage: 1 UNK, QD
     Dates: start: 20080207
  7. GEMZAR [Concomitant]
     Indication: DRUG USE FOR UNKNOWN INDICATION

REACTIONS (1)
  - PARALYSIS [None]
